FAERS Safety Report 4633990-2 (Version None)
Quarter: 2005Q2

REPORT INFORMATION
  Report Type: 
  Country: None (occurrence: None)
  Receive Date: 20050412
  Receipt Date: 20050412
  Transmission Date: 20051028
  Serious: Yes (Hospitalization)
  Sender: FDA-Public Use
  Company Number: None

PATIENT
  Age: 42 Year
  Sex: Male
  Weight: 90.7194 kg

DRUGS (1)
  1. HURRICANE SPRAY 20%    BEUTLICH [Suspect]
     Indication: INTUBATION
     Dosage: 1 SPRAY  ONCE  BUCCAL
     Route: 002
     Dates: start: 20040426, end: 20040426

REACTIONS (2)
  - METHAEMOGLOBINAEMIA [None]
  - PROCEDURAL COMPLICATION [None]
